FAERS Safety Report 11887870 (Version 1)
Quarter: 2016Q1

REPORT INFORMATION
  Report Type: Spontaneous
  Country: AU (occurrence: AU)
  Receive Date: 20160105
  Receipt Date: 20160105
  Transmission Date: 20160526
  Serious: Yes (Hospitalization)
  Sender: FDA-Public Use
  Company Number: AU-AUROBINDO-AUR-APL-2015-12052

PATIENT
  Age: 52 Year
  Sex: Female

DRUGS (3)
  1. ASENAPINE [Suspect]
     Active Substance: ASENAPINE
     Dosage: 15 MG, UNK
     Route: 065
  2. ASENAPINE [Suspect]
     Active Substance: ASENAPINE
     Indication: PRODUCT USED FOR UNKNOWN INDICATION
     Dosage: 10 MG, UNK
     Route: 065
  3. QUETIAPINE [Suspect]
     Active Substance: QUETIAPINE
     Indication: PRODUCT USED FOR UNKNOWN INDICATION
     Dosage: 50 MG, UNK
     Route: 065

REACTIONS (6)
  - Type I hypersensitivity [Recovered/Resolved]
  - Tachycardia [Recovered/Resolved]
  - Dyspnoea [Recovered/Resolved]
  - Myocarditis [Recovered/Resolved]
  - Oedema peripheral [Recovered/Resolved]
  - Congestive cardiomyopathy [Recovered/Resolved]
